FAERS Safety Report 5505932-9 (Version None)
Quarter: 2007Q4

REPORT INFORMATION
  Report Type: 
  Country: None (occurrence: None)
  Receive Date: 20071103
  Receipt Date: 20071026
  Transmission Date: 20080405
  Serious: Yes (Hospitalization, Other)
  Sender: FDA-Public Use
  Company Number: US-ELI_LILLY_AND_COMPANY-US200710000234

PATIENT
  Sex: Female
  Weight: 54.422 kg

DRUGS (16)
  1. FORTEO [Suspect]
     Dosage: UNK, UNK
     Dates: start: 20060101
  2. METHOTREXAT [Concomitant]
     Dosage: 12.5 MG, WEEKLY (1/W)
  3. NABUMETONE [Concomitant]
     Dosage: 150 MG, DAILY (1/D)
  4. FOSAMAX [Concomitant]
     Dosage: 70 MG, WEEKLY (1/W)
  5. GEMFIBROZIL [Concomitant]
     Dosage: 1200 MG, DAILY (1/D)
  6. FOLIC ACID [Concomitant]
     Dosage: 400 MG, DAILY (1/D)
  7. VITAMIN D [Concomitant]
     Dosage: 50000 U, OTHER
  8. MULTI-VITAMIN [Concomitant]
     Dosage: 1 D/F, DAILY (1/D)
  9. ASPIRIN [Concomitant]
     Dosage: 81 MG, 2/D
  10. LACTULOSE [Concomitant]
     Dosage: UNK, AS NEEDED
  11. LEVOTHYROXINE SODIUM [Concomitant]
     Dosage: 50 UG, DAILY (1/D)
  12. EVOXAC [Concomitant]
     Dosage: UNK, OTHER
  13. MECLIZINE HCL [Concomitant]
     Dosage: 12.5 MG, DAILY (1/D)
  14. PREDNISONE [Concomitant]
     Dosage: 1 D/F, DAILY (1/D)
  15. NEXIUM [Concomitant]
     Dosage: 40 MG, DAILY (1/D)
  16. PROZAC [Concomitant]

REACTIONS (2)
  - CONVULSION [None]
  - UNRESPONSIVE TO STIMULI [None]
